FAERS Safety Report 18586811 (Version 1)
Quarter: 2020Q4

REPORT INFORMATION
  Report Type: Spontaneous
  Country: US (occurrence: US)
  Receive Date: 20201207
  Receipt Date: 20201207
  Transmission Date: 20210114
  Serious: No
  Sender: FDA-Public Use
  Company Number: None

PATIENT
  Age: 25 Year
  Sex: Male
  Weight: 184 kg

DRUGS (1)
  1. REMDESIVIR. [Suspect]
     Active Substance: REMDESIVIR
     Indication: COVID-19 PNEUMONIA

REACTIONS (4)
  - Flushing [None]
  - Infusion related reaction [None]
  - Incorrect drug administration rate [None]
  - Hyperhidrosis [None]

NARRATIVE: CASE EVENT DATE: 20201206
